FAERS Safety Report 21083929 (Version 1)
Quarter: 2022Q3

REPORT INFORMATION
  Report Type: Spontaneous
  Country: CN (occurrence: CN)
  Receive Date: 20220714
  Receipt Date: 20220714
  Transmission Date: 20221027
  Serious: Yes (Other)
  Sender: FDA-Public Use
  Company Number: None

PATIENT
  Age: 62 Year
  Sex: Female
  Weight: 60 kg

DRUGS (8)
  1. CYCLOPHOSPHAMIDE [Suspect]
     Active Substance: CYCLOPHOSPHAMIDE
     Indication: Breast cancer female
     Dosage: QD POWDER INJECTION, 1-9 TIMES - CYCLOPHOSPHAMIDE + NS
     Route: 042
  2. CYCLOPHOSPHAMIDE [Suspect]
     Active Substance: CYCLOPHOSPHAMIDE
     Dosage: 1000 MG, QD POWDER INJECTION, 10TH TIME- CYCLOPHOSPHAMIDE (1000 MG) + NS (50ML)
     Route: 042
     Dates: start: 20220530, end: 20220530
  3. SODIUM CHLORIDE [Suspect]
     Active Substance: SODIUM CHLORIDE
     Indication: Medication dilution
     Dosage: QD POWDER INJECTION, 1 TO 9 TIME CYCLOPHOSPHAMIDE + NS
     Route: 042
  4. SODIUM CHLORIDE [Suspect]
     Active Substance: SODIUM CHLORIDE
     Dosage: 50 ML, QD 10TH TIME- CYCLOPHOSPHAMIDE (1000 MG) + NS (50ML)
     Route: 042
     Dates: start: 20220530, end: 20220530
  5. SODIUM CHLORIDE [Suspect]
     Active Substance: SODIUM CHLORIDE
     Dosage: QD POWDER INJECTION, 1-9 TIME- EPIRUBICIN HYDROCHLORIDE + NS
     Route: 041
  6. SODIUM CHLORIDE [Suspect]
     Active Substance: SODIUM CHLORIDE
     Dosage: 100 ML, QD 10TH TIME- EPIRUBICIN HYDROCHLORIDE (135 MG) + NS (100ML)
     Route: 041
     Dates: start: 20220530, end: 20220530
  7. EPIRUBICIN HYDROCHLORIDE [Suspect]
     Active Substance: EPIRUBICIN HYDROCHLORIDE
     Indication: Breast cancer female
     Dosage: QD POWDER INJECTION, 1-9 TIME- EPIRUBICIN HYDROCHLORIDE + NS
     Route: 041
  8. EPIRUBICIN HYDROCHLORIDE [Suspect]
     Active Substance: EPIRUBICIN HYDROCHLORIDE
     Dosage: 135 MG, QD POWDER INJECTION, 10TH TIME- EPIRUBICIN HYDROCHLORIDE (135 MG) + NS (100ML)
     Route: 041
     Dates: start: 20220530, end: 20220530

REACTIONS (2)
  - White blood cell count decreased [Recovered/Resolved]
  - Agranulocytosis [Recovered/Resolved]

NARRATIVE: CASE EVENT DATE: 20220610
